FAERS Safety Report 21157905 (Version 1)
Quarter: 2022Q3

REPORT INFORMATION
  Report Type: Spontaneous
  Country: US (occurrence: None)
  Receive Date: 20220801
  Receipt Date: 20220801
  Transmission Date: 20221027
  Serious: No
  Sender: FDA-Public Use
  Company Number: 2022A258688

PATIENT
  Age: 25464 Day
  Sex: Male
  Weight: 72.6 kg

DRUGS (1)
  1. FARXIGA [Suspect]
     Active Substance: DAPAGLIFLOZIN PROPANEDIOL
     Indication: Blood glucose abnormal
     Route: 048
     Dates: start: 20220716

REACTIONS (2)
  - Dizziness [Unknown]
  - Decreased activity [Unknown]

NARRATIVE: CASE EVENT DATE: 20220716
